FAERS Safety Report 19241143 (Version 1)
Quarter: 2021Q2

REPORT INFORMATION
  Report Type: Spontaneous
  Country: US (occurrence: US)
  Receive Date: 20210510
  Receipt Date: 20210510
  Transmission Date: 20210717
  Serious: Yes (Other)
  Sender: FDA-Public Use
  Company Number: None

PATIENT
  Age: 31 Year
  Sex: Female
  Weight: 59.87 kg

DRUGS (1)
  1. CARBAMAZEPINE ER 400MG [Suspect]
     Active Substance: CARBAMAZEPINE
     Indication: SEIZURE
     Dosage: 400MG 2X DAIL ORAL
     Route: 048
     Dates: start: 2007, end: 2007

REACTIONS (3)
  - Panic attack [None]
  - Mood altered [None]
  - Anxiety [None]
